FAERS Safety Report 24425379 (Version 1)
Quarter: 2024Q4

REPORT INFORMATION
  Report Type: Spontaneous
  Country: US (occurrence: US)
  Receive Date: 20241011
  Receipt Date: 20241011
  Transmission Date: 20250115
  Serious: No
  Sender: GLENMARK
  Company Number: US-GLENMARK PHARMACEUTICALS-2024GMK091621

PATIENT

DRUGS (1)
  1. OXCARBAZEPINE [Suspect]
     Active Substance: OXCARBAZEPINE
     Indication: Mood altered
     Dosage: 1 DOSAGE FORM, OD (1 TABLET  BY MOUTH DAILY)
     Route: 048

REACTIONS (1)
  - Product prescribing issue [Unknown]
